FAERS Safety Report 14922428 (Version 2)
Quarter: 2018Q3

REPORT INFORMATION
  Report Type: Spontaneous
  Country: CA (occurrence: CA)
  Receive Date: 20180522
  Receipt Date: 20180817
  Transmission Date: 20181010
  Serious: No
  Sender: FDA-Public Use
  Company Number: US-PFIZER INC-2018206358

PATIENT
  Sex: Male

DRUGS (1)
  1. DETRUSITOL [Suspect]
     Active Substance: TOLTERODINE TARTRATE
     Indication: HYPERTONIC BLADDER

REACTIONS (2)
  - Testicular disorder [Unknown]
  - Bladder disorder [Unknown]
